FAERS Safety Report 5166468-0 (Version None)
Quarter: 2006Q4

REPORT INFORMATION
  Report Type: 
  Country: None (occurrence: None)
  Receive Date: 20061129
  Receipt Date: 20061116
  Transmission Date: 20070319
  Serious: Yes (Hospitalization)
  Sender: FDA-Public Use
  Company Number: 2006SP002723

PATIENT
  Age: 59 Year
  Sex: Female

DRUGS (3)
  1. PEG-INTRON [Suspect]
     Indication: HEPATITIS C
     Dosage: 80MCG;QW;SC
     Route: 058
     Dates: start: 20060904, end: 20060918
  2. REBETOL [Suspect]
     Indication: HEPATITIS C
     Dosage: 600 MG;QD;PO
     Route: 048
     Dates: start: 20060904, end: 20060918
  3. URSO [Concomitant]

REACTIONS (2)
  - HAEMOGLOBIN DECREASED [None]
  - MOVEMENT DISORDER [None]
